FAERS Safety Report 5795110-0 (Version None)
Quarter: 2008Q2

REPORT INFORMATION
  Report Type: 
  Country: None (occurrence: None)
  Receive Date: 20080630
  Receipt Date: 20080415
  Transmission Date: 20081010
  Serious: No
  Sender: FDA-Public Use
  Company Number: US-BRISTOL-MYERS SQUIBB COMPANY-14151336

PATIENT
  Sex: Female

DRUGS (1)
  1. ORENCIA [Suspect]
     Dosage: TOTAL INFUSIONS: 4. THIRD INFUSION ON 28-DEC-2007

REACTIONS (2)
  - COUGH [None]
  - THROAT IRRITATION [None]
